FAERS Safety Report 6691605-6 (Version None)
Quarter: 2010Q2

REPORT INFORMATION
  Report Type: 
  Country: None (occurrence: None)
  Receive Date: 20100422
  Receipt Date: 20100413
  Transmission Date: 20101027
  Serious: Yes (Hospitalization)
  Sender: FDA-Public Use
  Company Number: US-JNJFOC-20100403806

PATIENT
  Sex: Female

DRUGS (6)
  1. FENTANYL CITRATE [Suspect]
     Indication: PAIN
     Route: 062
  2. PERCOCET [Concomitant]
     Indication: PAIN
     Route: 048
  3. XANAX [Concomitant]
     Route: 048
  4. LITHIUM [Concomitant]
     Route: 048
  5. CELEXA [Concomitant]
     Route: 048
  6. FLOVENT [Concomitant]
     Route: 055

REACTIONS (3)
  - CYANOSIS [None]
  - LOSS OF CONSCIOUSNESS [None]
  - PRODUCT QUALITY ISSUE [None]
